FAERS Safety Report 20889925 (Version 1)
Quarter: 2022Q2

REPORT INFORMATION
  Report Type: Spontaneous
  Country: ES (occurrence: ES)
  Receive Date: 20220530
  Receipt Date: 20220530
  Transmission Date: 20220721
  Serious: Yes (Other)
  Sender: FDA-Public Use
  Company Number: ES-DENTSPLY-2022SCDP000126

PATIENT
  Sex: Male

DRUGS (1)
  1. LIDOCAINE\PRILOCAINE [Suspect]
     Active Substance: LIDOCAINE\PRILOCAINE
     Indication: Product used for unknown indication
     Dosage: 150 MG/ML + 50 MG/ML FORTACIN CUTANEOUS SPRAY, SOLUTION
     Route: 065

REACTIONS (1)
  - Erectile dysfunction [Unknown]
